FAERS Safety Report 17610619 (Version 1)
Quarter: 2020Q1

REPORT INFORMATION
  Report Type: Spontaneous
  Country: US (occurrence: US)
  Receive Date: 20200330
  Receipt Date: 20200330
  Transmission Date: 20200409
  Serious: Yes (Hospitalization)
  Sender: FDA-Public Use
  Company Number: None

PATIENT
  Age: 51 Year
  Sex: Male
  Weight: 72 kg

DRUGS (2)
  1. BENZTROPINE (BENZTROPINE MESYLATE 1MG TAB,UD) [Suspect]
     Active Substance: BENZTROPINE MESYLATE
     Indication: BIPOLAR I DISORDER
     Route: 048
     Dates: start: 20170728, end: 20200122
  2. PAROXETINE (PAROXETINE HCL 40MG TAB) [Suspect]
     Active Substance: PAROXETINE HYDROCHLORIDE
     Indication: BIPOLAR I DISORDER
     Route: 048
     Dates: start: 20190918, end: 20200122

REACTIONS (1)
  - Constipation [None]

NARRATIVE: CASE EVENT DATE: 20200103
